FAERS Safety Report 7272214-7 (Version None)
Quarter: 2010Q4

REPORT INFORMATION
  Report Type: 
  Country: None (occurrence: None)
  Receive Date: 20101216
  Receipt Date: 20101110
  Transmission Date: 20110411
  Serious: Yes (Hospitalization)
  Sender: FDA-Public Use
  Company Number: 2010S1000372

PATIENT
  Age: 25 Year
  Sex: Female
  Weight: 66.1 kg

DRUGS (2)
  1. VENLAFAXINE HCL EXTENDED-RELEASE [Suspect]
     Indication: DEPRESSION
     Dosage: 75 MG;QD;PO
     Route: 048
     Dates: start: 20100708, end: 20100719
  2. STUDY DRUG [Suspect]
     Indication: DEPRESSION
     Dosage: PO
     Route: 048
     Dates: start: 20100708, end: 20100719

REACTIONS (1)
  - SUICIDAL IDEATION [None]
